FAERS Safety Report 7729463-0 (Version None)
Quarter: 2011Q3

REPORT INFORMATION
  Report Type: 
  Country: None (occurrence: None)
  Receive Date: 20110906
  Receipt Date: 20110826
  Transmission Date: 20111222
  Serious: Yes (Death, Other)
  Sender: FDA-Public Use
  Company Number: JP-SANOFI-AVENTIS-2011SA049046

PATIENT
  Age: 67 Year
  Sex: Male

DRUGS (1)
  1. ALLEGRA [Suspect]
     Indication: ECZEMA
     Route: 048
     Dates: start: 20110330, end: 20110706

REACTIONS (3)
  - HEPATIC FUNCTION ABNORMAL [None]
  - ANAEMIA [None]
  - DEATH [None]
